FAERS Safety Report 6136697-8 (Version None)
Quarter: 2009Q1

REPORT INFORMATION
  Report Type: 
  Country: None (occurrence: None)
  Receive Date: 20090330
  Receipt Date: 20090320
  Transmission Date: 20090719
  Serious: Yes (Hospitalization)
  Sender: FDA-Public Use
  Company Number: PHHY2009CH10386

PATIENT
  Age: 18 Year
  Sex: Male

DRUGS (3)
  1. VOLTAREN [Suspect]
     Indication: ARTHRALGIA
     Dosage: 100 MG
     Dates: start: 20090220
  2. VOLTAREN [Suspect]
     Dosage: 125 MG
     Dates: start: 20090223
  3. VOLTAREN [Suspect]
     Dosage: 75 MG
     Dates: end: 20090224

REACTIONS (5)
  - DEHYDRATION [None]
  - HYPERTENSION [None]
  - NAUSEA [None]
  - RENAL FAILURE ACUTE [None]
  - VOMITING [None]
